FAERS Safety Report 19469144 (Version 1)
Quarter: 2021Q2

REPORT INFORMATION
  Report Type: Spontaneous
  Country: US (occurrence: US)
  Receive Date: 20210628
  Receipt Date: 20210628
  Transmission Date: 20210717
  Serious: Yes (Other)
  Sender: FDA-Public Use
  Company Number: US-MALLINCKRODT PHARMACEUTICALS-T202102790

PATIENT
  Age: 55 Year
  Sex: Male

DRUGS (2)
  1. ILOPROST. [Concomitant]
     Active Substance: ILOPROST
     Indication: PRODUCT USED FOR UNKNOWN INDICATION
     Dosage: UNK NEBULIZED, EVERY 3 HOURS
     Route: 065
  2. INOMAX [Suspect]
     Active Substance: NITRIC OXIDE
     Indication: PULMONARY HYPERTENSION
     Dosage: 7 PPM (INHALATION)
     Route: 055
     Dates: start: 20210510

REACTIONS (4)
  - Device failure [Unknown]
  - Pulmonary arterial pressure increased [Unknown]
  - Loss of consciousness [Unknown]
  - Panic attack [Unknown]

NARRATIVE: CASE EVENT DATE: 20210619
